FAERS Safety Report 11038809 (Version 4)
Quarter: 2016Q1

REPORT INFORMATION
  Report Type: Spontaneous
  Country: US (occurrence: US)
  Receive Date: 20150416
  Receipt Date: 20160328
  Transmission Date: 20160525
  Serious: Yes (Hospitalization, Other)
  Sender: FDA-Public Use
  Company Number: US-BAYER-2015-135747

PATIENT
  Age: 29 Year
  Sex: Female
  Weight: 113.38 kg

DRUGS (33)
  1. BENADRYL [ACRIVASTINE] [Concomitant]
  2. VENTOLIN [Concomitant]
     Active Substance: ALBUTEROL SULFATE
  3. DILANTIN [Concomitant]
     Active Substance: PHENYTOIN
     Dosage: UNK
     Dates: start: 2008, end: 2014
  4. ZOLOFT [Concomitant]
     Active Substance: SERTRALINE HYDROCHLORIDE
     Indication: DEPRESSION
     Dosage: UNK
     Dates: start: 2010
  5. AZITHROMYCIN ANHYDROUS. [Concomitant]
     Active Substance: AZITHROMYCIN ANHYDROUS
     Indication: CHLAMYDIAL INFECTION
     Dosage: 1 G, MIX 1 PACKET WITH LIQUID ONCE
     Dates: start: 20130322, end: 20130422
  6. VICODIN [Concomitant]
     Active Substance: ACETAMINOPHEN\HYDROCODONE BITARTRATE
     Indication: HEADACHE
  7. TESSALON [Concomitant]
     Active Substance: BENZONATATE
  8. PHENYTOIN. [Concomitant]
     Active Substance: PHENYTOIN
  9. MIRENA [Suspect]
     Active Substance: LEVONORGESTREL
     Indication: CONTRACEPTION
     Dosage: 20 MCG/24HR, CONT
     Route: 015
     Dates: start: 2005, end: 2009
  10. FLAGYL [Concomitant]
     Active Substance: METRONIDAZOLE\METRONIDAZOLE HYDROCHLORIDE
  11. MYLANTA SOOTHING ANTACIDS [Concomitant]
  12. VISTARIL [Concomitant]
     Active Substance: HYDROXYZINE PAMOATE
  13. MIRENA [Suspect]
     Active Substance: LEVONORGESTREL
     Indication: CONTRACEPTION
     Dosage: 20 MCG/24HR, CONT
     Route: 015
     Dates: start: 2004, end: 2005
  14. ZITHROMAX [Concomitant]
     Active Substance: AZITHROMYCIN DIHYDRATE
  15. CEFTRIAXONE. [Concomitant]
     Active Substance: CEFTRIAXONE
  16. SERTRALINE [Concomitant]
     Active Substance: SERTRALINE HYDROCHLORIDE
  17. ACETAMINOPHEN. [Concomitant]
     Active Substance: ACETAMINOPHEN
  18. MIRENA [Suspect]
     Active Substance: LEVONORGESTREL
     Indication: CONTRACEPTION
     Dosage: 20 MCG/24HR, CONT
     Route: 015
     Dates: start: 2009, end: 20130515
  19. PREDNISONE. [Concomitant]
     Active Substance: PREDNISONE
  20. ABILIFY [Concomitant]
     Active Substance: ARIPIPRAZOLE
  21. HYDROCODONE [Concomitant]
     Active Substance: HYDROCODONE
  22. CELEXA [Concomitant]
     Active Substance: CITALOPRAM HYDROBROMIDE
  23. ZITHROMAX [Concomitant]
     Active Substance: AZITHROMYCIN DIHYDRATE
  24. NICODERM CQ [Concomitant]
     Active Substance: NICOTINE
  25. NAPROSYN [Concomitant]
     Active Substance: NAPROXEN
  26. KENALOG [Concomitant]
     Active Substance: TRIAMCINOLONE ACETONIDE
  27. LITHIUM CARBONATE. [Concomitant]
     Active Substance: LITHIUM CARBONATE
  28. SOLU-MEDROL [Concomitant]
     Active Substance: METHYLPREDNISOLONE SODIUM SUCCINATE
  29. OXCARBAZEPINE. [Concomitant]
     Active Substance: OXCARBAZEPINE
  30. TRAZODONE [Concomitant]
     Active Substance: TRAZODONE HYDROCHLORIDE
  31. NORCO [Concomitant]
     Active Substance: ACETAMINOPHEN\HYDROCODONE BITARTRATE
  32. HALDOL [Concomitant]
     Active Substance: HALOPERIDOL
  33. FLONASE [Concomitant]
     Active Substance: FLUTICASONE PROPIONATE

REACTIONS (11)
  - Embedded device [None]
  - Genital haemorrhage [None]
  - Suicidal ideation [None]
  - Device difficult to use [None]
  - Device issue [None]
  - Device issue [None]
  - Abdominal pain [None]
  - Vaginal haemorrhage [None]
  - Injury [None]
  - Pelvic inflammatory disease [None]
  - Menorrhagia [None]

NARRATIVE: CASE EVENT DATE: 2004
